FAERS Safety Report 13688888 (Version 1)
Quarter: 2017Q2

REPORT INFORMATION
  Report Type: Report from Study
  Country: None (occurrence: US)
  Receive Date: 20170626
  Receipt Date: 20170626
  Transmission Date: 20170830
  Serious: Yes (Hospitalization, Other)
  Sender: FDA-Public Use
  Company Number: US-ABBVIE-16K-163-1737652-00

PATIENT
  Sex: Female

DRUGS (4)
  1. HUMIRA [Suspect]
     Active Substance: ADALIMUMAB
     Indication: CROHN^S DISEASE
     Route: 058
     Dates: start: 201201
  2. PREDNISONE. [Suspect]
     Active Substance: PREDNISONE
     Indication: PRODUCT USED FOR UNKNOWN INDICATION
     Route: 065
  3. BABY ASPIRIN [Concomitant]
     Active Substance: ASPIRIN
     Indication: ANTICOAGULANT THERAPY
  4. HUMIRA [Suspect]
     Active Substance: ADALIMUMAB
     Route: 058

REACTIONS (12)
  - Injection site pain [Not Recovered/Not Resolved]
  - Injection site swelling [Unknown]
  - Pain [Unknown]
  - Thrombosis [Recovered/Resolved]
  - Hip fracture [Recovered/Resolved]
  - Injection site mass [Unknown]
  - Crohn^s disease [Recovered/Resolved]
  - Rheumatoid arthritis [Not Recovered/Not Resolved]
  - Inguinal hernia [Unknown]
  - Mobility decreased [Unknown]
  - Intestinal resection [Unknown]
  - Hip fracture [Recovered/Resolved]

NARRATIVE: CASE EVENT DATE: 2012
